FAERS Safety Report 19363640 (Version 1)
Quarter: 2021Q2

REPORT INFORMATION
  Report Type: Spontaneous
  Country: ES (occurrence: ES)
  Receive Date: 20210602
  Receipt Date: 20210602
  Transmission Date: 20210717
  Serious: Yes (Other)
  Sender: FDA-Public Use
  Company Number: ES-PFIZER INC-2021587696

PATIENT
  Sex: Female
  Weight: 53 kg

DRUGS (1)
  1. METOTREXATO WYETH [Suspect]
     Active Substance: METHOTREXATE SODIUM
     Indication: ARTHRITIS
     Dosage: DOSAGE TEXT: FOLLOWING GUIDELINES INDICATED BY THE PHYSICIAN
     Route: 048

REACTIONS (7)
  - Feeling cold [Unknown]
  - Weight decreased [Unknown]
  - Vertigo [Unknown]
  - Off label use [Unknown]
  - Alopecia [Unknown]
  - General physical health deterioration [Recovered/Resolved with Sequelae]
  - Vomiting [Unknown]
